FAERS Safety Report 6877132-1 (Version None)
Quarter: 2010Q3

REPORT INFORMATION
  Report Type: 
  Country: None (occurrence: None)
  Receive Date: 20100727
  Receipt Date: 20100727
  Transmission Date: 20110219
  Serious: Yes (Other)
  Sender: FDA-Public Use
  Company Number: None

PATIENT

DRUGS (1)
  1. LETROZOLE [Suspect]
     Indication: BODY HEIGHT BELOW NORMAL
     Dosage: 2.5 MG QD PO
     Route: 048

REACTIONS (4)
  - AVULSION FRACTURE [None]
  - ILIUM FRACTURE [None]
  - OFF LABEL USE [None]
  - UPPER LIMB FRACTURE [None]
